FAERS Safety Report 9295993 (Version 1)
Quarter: 2013Q2

REPORT INFORMATION
  Report Type: Spontaneous
  Country: DE (occurrence: DE)
  Receive Date: 20130517
  Receipt Date: 20130517
  Transmission Date: 20140414
  Serious: Yes (Congenital Anomaly)
  Sender: FDA-Public Use
  Company Number: GXKR2013DE001849

PATIENT
  Sex: Male
  Weight: 3.51 kg

DRUGS (7)
  1. VENLAFAXINE [Suspect]
     Indication: ANXIETY DISORDER
     Dosage: 37.5 MG DAILY
     Route: 064
     Dates: start: 20111027, end: 20120729
  2. METOPROLOL [Concomitant]
     Indication: TACHYCARDIA
     Dosage: 47.5 MG DAILY
     Route: 064
     Dates: start: 20111027, end: 20120729
  3. VOMEX A [Concomitant]
     Indication: GASTROENTERITIS
     Dosage: UNK UKN, UNK
     Route: 064
     Dates: start: 20120209, end: 20120221
  4. AMOXICILLIN [Concomitant]
     Indication: CYSTITIS
     Dosage: UNK UKN, UNK
     Route: 064
     Dates: start: 20120209, end: 20120213
  5. FEMIBION [Concomitant]
     Indication: PROPHYLAXIS OF NEURAL TUBE DEFECT
     Dosage: 0.8 MG DAILY
     Route: 064
     Dates: start: 20111027, end: 20120729
  6. MAALOXAN [Concomitant]
     Indication: GASTROENTERITIS
     Dosage: UNK UKN, UNK
     Route: 064
     Dates: start: 20120209, end: 20120221
  7. PARACETAMOL [Concomitant]
     Indication: GASTROENTERITIS
     Dosage: UNK UKN, UNK
     Route: 064
     Dates: start: 20120209, end: 20120221

REACTIONS (2)
  - Ventricular septal defect [Recovered/Resolved]
  - Foetal exposure during pregnancy [Recovered/Resolved]
